FAERS Safety Report 26090486 (Version 1)
Quarter: 2025Q4

REPORT INFORMATION
  Report Type: Spontaneous
  Country: CO (occurrence: CO)
  Receive Date: 20251126
  Receipt Date: 20251126
  Transmission Date: 20260118
  Serious: Yes (Hospitalization)
  Sender: NOVARTIS
  Company Number: CO-002147023-NVSC2025CO178852

PATIENT
  Sex: Female
  Weight: 48 kg

DRUGS (1)
  1. COSENTYX [Suspect]
     Active Substance: SECUKINUMAB
     Indication: Urticaria
     Dosage: 150 MG, Q2W
     Route: 058

REACTIONS (2)
  - Constipation [Unknown]
  - Product use in unapproved indication [Unknown]
